FAERS Safety Report 12368803 (Version 1)
Quarter: 2016Q2

REPORT INFORMATION
  Report Type: Spontaneous
  Country: DE (occurrence: DE)
  Receive Date: 20160513
  Receipt Date: 20160513
  Transmission Date: 20160815
  Serious: Yes (Hospitalization)
  Sender: FDA-Public Use
  Company Number: DE-ELI_LILLY_AND_COMPANY-DE201605000993

PATIENT
  Age: 48 Year
  Sex: Female

DRUGS (2)
  1. ABASAGLAR [Suspect]
     Active Substance: INSULIN GLARGINE
     Indication: PRODUCT USED FOR UNKNOWN INDICATION
     Dosage: UNK, UNKNOWN
     Route: 065
     Dates: start: 201601
  2. SIOFOR [Concomitant]
     Active Substance: METFORMIN HYDROCHLORIDE
     Dosage: 1000 DF, UNKNOWN
     Route: 065

REACTIONS (12)
  - Asthma [Recovering/Resolving]
  - Oropharyngeal pain [Not Recovered/Not Resolved]
  - Rash [Not Recovered/Not Resolved]
  - Nasopharyngitis [Recovering/Resolving]
  - Hypersensitivity [Recovering/Resolving]
  - Pain in jaw [Not Recovered/Not Resolved]
  - Autoimmune disorder [Recovering/Resolving]
  - Throat irritation [Not Recovered/Not Resolved]
  - Pain of skin [Not Recovered/Not Resolved]
  - Emotional distress [Recovering/Resolving]
  - Headache [Recovering/Resolving]
  - Fatigue [Not Recovered/Not Resolved]

NARRATIVE: CASE EVENT DATE: 201601
